FAERS Safety Report 19100193 (Version 4)
Quarter: 2021Q2

REPORT INFORMATION
  Report Type: Spontaneous
  Country: US (occurrence: US)
  Receive Date: 20210407
  Receipt Date: 20210418
  Transmission Date: 20210717
  Serious: Yes (Other)
  Sender: FDA-Public Use
  Company Number: US-AMGEN-USASP2021049444

PATIENT
  Age: 81 Year
  Sex: Female

DRUGS (1)
  1. PROLIA [Suspect]
     Active Substance: DENOSUMAB
     Indication: OSTEOPOROSIS POSTMENOPAUSAL
     Dosage: 60 MILLIGRAM, Q6MO
     Route: 065
     Dates: start: 2020

REACTIONS (5)
  - Body height decreased [Recovered/Resolved]
  - Periodontal disease [Recovered/Resolved]
  - Musculoskeletal discomfort [Recovered/Resolved]
  - Bone loss [Unknown]
  - Muscle spasms [Recovered/Resolved]
